FAERS Safety Report 7998628-5 (Version None)
Quarter: 2011Q4

REPORT INFORMATION
  Report Type: 
  Country: None (occurrence: None)
  Receive Date: 20111221
  Receipt Date: 20111215
  Transmission Date: 20120403
  Serious: Yes (Hospitalization)
  Sender: FDA-Public Use
  Company Number: PHHO2011RU16771

PATIENT
  Sex: Male
  Weight: 78 kg

DRUGS (13)
  1. NEORAL [Suspect]
     Dosage: UNK
     Route: 048
     Dates: start: 20111122
  2. MYFORTIC [Suspect]
     Indication: RENAL TRANSPLANT
     Dosage: 720 MG, BID
     Route: 048
     Dates: start: 20110905
  3. NEORAL [Suspect]
     Indication: RENAL TRANSPLANT
     Dosage: 150 MG, BID
     Route: 048
     Dates: start: 20110905, end: 20111003
  4. PREDNISOLONE [Suspect]
     Indication: IMMUNOSUPPRESSANT DRUG THERAPY
     Dosage: 12.5 MG, QD
     Route: 048
     Dates: start: 20110905
  5. DOXAZOSIN MESYLATE [Concomitant]
     Indication: HYPERTENSION
     Dosage: 4 MG, BID
     Route: 048
     Dates: start: 20110901
  6. SIMVASTATIN [Concomitant]
     Indication: DYSLIPIDAEMIA
     Dosage: 20 MG, QD
     Route: 048
     Dates: start: 20110901
  7. GANCICLOVIR [Concomitant]
     Indication: PROPHYLAXIS
     Dosage: 350 MG, QD
     Route: 042
     Dates: start: 20111103
  8. OMEPRAZOLE [Concomitant]
     Indication: PROPHYLAXIS
     Dosage: 20 MG, QD
     Route: 048
     Dates: start: 20110905
  9. BISOPROLOL FUMARATE [Concomitant]
     Indication: HYPERTENSION
     Dosage: 10 MG, QD
     Dates: start: 20111101
  10. CORDAFLEX [Concomitant]
     Indication: HYPERTENSION
     Dosage: 20 MG, BID
     Route: 048
     Dates: start: 20110901
  11. EGILOK [Concomitant]
     Indication: RENAL HYPERTENSION
     Dosage: 50 MG, TID
     Route: 048
     Dates: start: 20080101
  12. VALGANCICLOVIR [Concomitant]
     Indication: INFECTION PROPHYLAXIS
     Dosage: 200 MG, QD
     Dates: start: 20111101
  13. CLOPIDOGREL [Concomitant]
     Indication: THROMBOCYTOSIS
     Dosage: 75 MG, QD
     Dates: start: 20110901

REACTIONS (3)
  - KIDNEY TRANSPLANT REJECTION [None]
  - PYELONEPHRITIS CHRONIC [None]
  - CONDITION AGGRAVATED [None]
